FAERS Safety Report 21247355 (Version 2)
Quarter: 2022Q3

REPORT INFORMATION
  Report Type: Spontaneous
  Country: US (occurrence: US)
  Receive Date: 20220824
  Receipt Date: 20220918
  Transmission Date: 20221027
  Serious: Yes (Hospitalization, Other)
  Sender: FDA-Public Use
  Company Number: US-UNITED THERAPEUTICS-UNT-2022-018522

PATIENT
  Sex: Male
  Weight: 95.238 kg

DRUGS (5)
  1. REMODULIN [Suspect]
     Active Substance: TREPROSTINIL
     Indication: Pulmonary arterial hypertension
     Dosage: UNK, CONTINUING
     Route: 058
     Dates: start: 20140210, end: 20220812
  2. REMODULIN [Suspect]
     Active Substance: TREPROSTINIL
     Dosage: UNK, CONTINUING
     Route: 058
     Dates: start: 20220813
  3. REMODULIN [Suspect]
     Active Substance: TREPROSTINIL
     Dosage: 0.118 ?G/KG, CONTINUING
     Route: 058
  4. ADCIRCA [Concomitant]
     Active Substance: TADALAFIL
     Indication: Pulmonary arterial hypertension
     Dosage: UNK
     Route: 065
  5. LETAIRIS [Concomitant]
     Active Substance: AMBRISENTAN
     Indication: Product used for unknown indication
     Dosage: UNK
     Route: 065

REACTIONS (15)
  - Device dislocation [Recovered/Resolved]
  - Infusion site reaction [Unknown]
  - Pneumonia viral [Unknown]
  - Rhinovirus infection [Unknown]
  - Mental impairment [Unknown]
  - Dyspepsia [Unknown]
  - Heart rate increased [Unknown]
  - Hot flush [Unknown]
  - Anxiety [Unknown]
  - Insomnia [Unknown]
  - Nasal congestion [Unknown]
  - Feeling hot [Unknown]
  - Infusion site swelling [Unknown]
  - Infusion site erythema [Unknown]
  - Infusion site warmth [Unknown]

NARRATIVE: CASE EVENT DATE: 20220101
